FAERS Safety Report 19191880 (Version 2)
Quarter: 2021Q2

REPORT INFORMATION
  Report Type: Spontaneous
  Country: US (occurrence: US)
  Receive Date: 20210428
  Receipt Date: 20210608
  Transmission Date: 20210717
  Serious: Yes (Death, Hospitalization, Other)
  Sender: FDA-Public Use
  Company Number: US-ASTELLAS-2021US015251

PATIENT
  Sex: Male

DRUGS (1)
  1. PADCEV [Suspect]
     Active Substance: ENFORTUMAB VEDOTIN-EJFV
     Indication: TRANSITIONAL CELL CARCINOMA
     Dosage: 1.22 MG/KG, CYCLIC (1,8,15 EVERY 28 DAYS)
     Route: 065
     Dates: start: 20200827, end: 20210128

REACTIONS (5)
  - Malignant neoplasm progression [Fatal]
  - Constipation [Unknown]
  - Penile haemorrhage [Unknown]
  - Urinary retention [Unknown]
  - Pain [Unknown]
